FAERS Safety Report 4854054-9 (Version None)
Quarter: 2005Q4

REPORT INFORMATION
  Report Type: 
  Country: None (occurrence: None)
  Receive Date: 20051214
  Receipt Date: 20050208
  Transmission Date: 20060501
  Serious: Yes (Hospitalization, Disabling)
  Sender: FDA-Public Use
  Company Number: US-MERCK-0502USA01051

PATIENT
  Age: 59 Year
  Sex: Male
  Weight: 86 kg

DRUGS (2)
  1. VIOXX [Suspect]
     Indication: ARTHRITIS
     Route: 048
     Dates: start: 19990101, end: 20010101
  2. TYLENOL [Concomitant]
     Route: 065

REACTIONS (8)
  - ANXIETY [None]
  - ARTERIAL OCCLUSIVE DISEASE [None]
  - ARTHROPATHY [None]
  - CORONARY ARTERIAL STENT INSERTION [None]
  - DYSPNOEA [None]
  - POLYTRAUMATISM [None]
  - ROAD TRAFFIC ACCIDENT [None]
  - SHOULDER ARTHROPLASTY [None]
